FAERS Safety Report 21056539 (Version 1)
Quarter: 2022Q3

REPORT INFORMATION
  Report Type: Spontaneous
  Country: US (occurrence: US)
  Receive Date: 20220708
  Receipt Date: 20220708
  Transmission Date: 20221027
  Serious: No
  Sender: FDA-Public Use
  Company Number: US-ALLERGAN-2213231US

PATIENT
  Sex: Female

DRUGS (1)
  1. QULIPTA [Suspect]
     Active Substance: ATOGEPANT
     Indication: Migraine
     Dosage: UNK

REACTIONS (9)
  - Head discomfort [Unknown]
  - Pollakiuria [Unknown]
  - Paraesthesia [Unknown]
  - Photosensitivity reaction [Unknown]
  - Diplopia [Not Recovered/Not Resolved]
  - Vitreous floaters [Unknown]
  - Tinnitus [Unknown]
  - Therapeutic response decreased [Unknown]
  - Migraine [Unknown]
